FAERS Safety Report 10268532 (Version 1)
Quarter: 2014Q2

REPORT INFORMATION
  Report Type: Report from Study
  Country: US (occurrence: US)
  Receive Date: 20140630
  Receipt Date: 20140630
  Transmission Date: 20141212
  Serious: Yes (Hospitalization)
  Sender: FDA-Public Use
  Company Number: PHEH2014US012922

PATIENT
  Sex: Male

DRUGS (2)
  1. CLOZARIL [Suspect]
     Dosage: UKN
     Dates: end: 20140620
  2. CLOZARIL [Suspect]
     Dosage: 150 MG, DAILY
     Dates: start: 20140623

REACTIONS (2)
  - Mental status changes [Unknown]
  - Pyrexia [Unknown]
